FAERS Safety Report 5146746-1 (Version None)
Quarter: 2006Q4

REPORT INFORMATION
  Report Type: 
  Country: None (occurrence: None)
  Receive Date: 20061109
  Receipt Date: 20061030
  Transmission Date: 20070319
  Serious: Yes (Hospitalization, Other)
  Sender: FDA-Public Use
  Company Number: US-AMGEN-US198475

PATIENT
  Sex: Male

DRUGS (12)
  1. EPOGEN [Suspect]
     Indication: DIALYSIS
     Dates: start: 20060703
  2. INDERAL [Concomitant]
  3. LEVAQUIN [Concomitant]
  4. MIDODRINE HYDROCHLORIDE [Concomitant]
  5. METOPROLOL TARTRATE [Concomitant]
  6. CYTOMEL [Concomitant]
  7. FOLIC ACID [Concomitant]
  8. THIAMINE [Concomitant]
  9. VITAMIN CAP [Concomitant]
  10. LACTINEX [Concomitant]
  11. MAGNESIUM [Concomitant]
  12. LACTULOSE [Concomitant]

REACTIONS (3)
  - CARDIAC ARREST [None]
  - HYPERSENSITIVITY [None]
  - RESPIRATORY DISTRESS [None]
